FAERS Safety Report 14498098 (Version 1)
Quarter: 2018Q1

REPORT INFORMATION
  Report Type: Spontaneous
  Country: CN (occurrence: CN)
  Receive Date: 20180207
  Receipt Date: 20180207
  Transmission Date: 20180509
  Serious: Yes (Other)
  Sender: FDA-Public Use
  Company Number: CN-MYLANLABS-2018M1007219

PATIENT
  Age: 83 Year
  Sex: Male

DRUGS (9)
  1. DOXYCYCLINE. [Suspect]
     Active Substance: DOXYCYCLINE
     Indication: PNEUMONIA
     Dosage: FROM DAY 12 TO 17
     Route: 050
  2. INSULIN [Concomitant]
     Active Substance: INSULIN NOS
     Indication: PRODUCT USED FOR UNKNOWN INDICATION
     Dosage: 6 UNITS FROM DAY 8 TO DAY 16, THEN INTRAHEPATIC
     Route: 050
  3. INSULIN [Concomitant]
     Active Substance: INSULIN NOS
     Dosage: 6U FROM DAY 14 TO 16
     Route: 050
  4. BIFIDOBACTERIUM BIFIDUM W/LACTOBACI/01422101/ [Concomitant]
     Indication: PRODUCT USED FOR UNKNOWN INDICATION
     Dosage: 0.7 GRAM THREE TIMES A DAY FROM DAY 11 TO 21
     Route: 048
  5. AMLODIPINE BESYLATE. [Concomitant]
     Active Substance: AMLODIPINE BESYLATE
     Indication: PRODUCT USED FOR UNKNOWN INDICATION
     Dosage: 5 MG, QD
     Route: 048
  6. ESOMEPRAZOL                        /01479301/ [Concomitant]
     Active Substance: ESOMEPRAZOLE
     Indication: PRODUCT USED FOR UNKNOWN INDICATION
     Dosage: FROM DAY 7 TO DAY 20
     Route: 065
  7. CEFOPERAZONE;TAZOBACTAM [Interacting]
     Active Substance: CEFOPERAZONE\TAZOBACTAM SODIUM
     Indication: PNEUMONIA
     Dosage: FROM DAY 8 TO DAY 21
     Route: 050
  8. AMBROXOL HYDROCHLORIDE [Concomitant]
     Active Substance: AMBROXOL HYDROCHLORIDE
     Indication: PRODUCT USED FOR UNKNOWN INDICATION
     Dosage: FROM DAY 8 TO DAY 21
     Route: 042
  9. INSULIN [Concomitant]
     Active Substance: INSULIN NOS
     Dosage: 8 UNITS FROM DAY 17 TO DAY 21
     Route: 050

REACTIONS (4)
  - International normalised ratio increased [Recovered/Resolved]
  - Prothrombin time prolonged [Recovered/Resolved]
  - Activated partial thromboplastin time prolonged [Recovered/Resolved]
  - Drug interaction [Recovered/Resolved]
